FAERS Safety Report 13738936 (Version 2)
Quarter: 2018Q2

REPORT INFORMATION
  Report Type: Spontaneous
  Country: US (occurrence: US)
  Receive Date: 20170710
  Receipt Date: 20180627
  Transmission Date: 20180711
  Serious: Yes (Hospitalization)
  Sender: FDA-Public Use
  Company Number: US-SAOL THERAPEUTICS-2017SAO00730

PATIENT
  Age: 79 Year
  Sex: Male
  Weight: 82.86 kg

DRUGS (15)
  1. TOPROL XL [Concomitant]
     Active Substance: METOPROLOL SUCCINATE
  2. MULTIVITAMIN [Concomitant]
     Active Substance: VITAMINS
  3. ACETYLSALICYLIC ACID [Concomitant]
     Active Substance: ASPIRIN
     Dosage: 81 MG, 1X/DAY
  4. PREVACID [Concomitant]
     Active Substance: LANSOPRAZOLE
  5. BACLOFEN (ORAL) [Concomitant]
     Active Substance: BACLOFEN
     Dosage: 10 MG, UP TO 3X/DAY
     Route: 048
  6. LIORESAL [Suspect]
     Active Substance: BACLOFEN
     Indication: MUSCLE SPASTICITY
     Dosage: 13.6 ?G, \DAY
     Route: 037
  7. LIORESAL [Suspect]
     Active Substance: BACLOFEN
     Indication: SPINAL CORD INJURY
  8. LIORESAL [Suspect]
     Active Substance: BACLOFEN
     Indication: PARAPLEGIA
  9. FLOMAX [Concomitant]
     Active Substance: TAMSULOSIN HYDROCHLORIDE
  10. CITRACAL + D [Concomitant]
     Active Substance: CALCIUM CITRATE\VITAMIN D
  11. LISINOPRIL. [Concomitant]
     Active Substance: LISINOPRIL
  12. VITAMIN B12 [Concomitant]
     Active Substance: CYANOCOBALAMIN
  13. FOSAMAX [Concomitant]
     Active Substance: ALENDRONATE SODIUM
     Dosage: 70 MG, 1X/WEEK
  14. PROSCAR [Concomitant]
     Active Substance: FINASTERIDE
  15. LIPITOR [Concomitant]
     Active Substance: ATORVASTATIN CALCIUM

REACTIONS (6)
  - Implant site extravasation [Recovered/Resolved]
  - Excessive granulation tissue [Recovered/Resolved]
  - Dysuria [Recovered/Resolved]
  - Muscle spasticity [Unknown]
  - Complication associated with device [Recovered/Resolved]
  - Drug dose omission [Recovered/Resolved]

NARRATIVE: CASE EVENT DATE: 201704
